FAERS Safety Report 6764488-3 (Version None)
Quarter: 2010Q2

REPORT INFORMATION
  Report Type: 
  Country: None (occurrence: None)
  Receive Date: 20100609
  Receipt Date: 20100415
  Transmission Date: 20101027
  Serious: No
  Sender: FDA-Public Use
  Company Number: 2010009403

PATIENT
  Age: 5 Year
  Sex: Male

DRUGS (1)
  1. CHILDREN'S ZYRTEC ALLERGY [Suspect]
     Indication: DRUG USE FOR UNKNOWN INDICATION
     Dosage: 1/2 TEASPOON ONCE A DAY, ORAL
     Route: 048
     Dates: start: 20100407

REACTIONS (1)
  - SKIN DISORDER [None]
